FAERS Safety Report 5060371-2 (Version None)
Quarter: 2006Q3

REPORT INFORMATION
  Report Type: 
  Country: None (occurrence: None)
  Receive Date: 20060720
  Receipt Date: 20060712
  Transmission Date: 20061208
  Serious: Yes (Life-Threatening, Hospitalization, Other)
  Sender: FDA-Public Use
  Company Number: 200612613GDS

PATIENT
  Age: 84 Year
  Sex: Male

DRUGS (8)
  1. MOXIFLOXACIN HYDROCHLORIDE [Suspect]
     Indication: BRONCHOPNEUMONIA
     Dosage: 400 MG, TOTAL DAILY, ORAL
     Route: 048
     Dates: start: 20060609, end: 20060614
  2. MOXIFLOXACIN HYDROCHLORIDE [Suspect]
     Indication: COUGH
     Dosage: 400 MG, TOTAL DAILY, ORAL
     Route: 048
     Dates: start: 20060609, end: 20060614
  3. MOXIFLOXACIN HYDROCHLORIDE [Suspect]
     Indication: SINUSITIS
     Dosage: 400 MG, TOTAL DAILY, ORAL
     Route: 048
     Dates: start: 20060609, end: 20060614
  4. WARFARIN SODIUM [Concomitant]
  5. RAVAMIL [Concomitant]
  6. AMOXIL [Concomitant]
  7. DICLOFENAC [Concomitant]
  8. IBUPROFEN [Concomitant]

REACTIONS (8)
  - AGITATION [None]
  - ANXIETY [None]
  - ATRIAL FIBRILLATION [None]
  - CARDIAC FAILURE [None]
  - CONSTIPATION [None]
  - FEAR [None]
  - RESTLESSNESS [None]
  - SINUS TACHYCARDIA [None]
